FAERS Safety Report 5107356-5 (Version None)
Quarter: 2006Q3

REPORT INFORMATION
  Report Type: 
  Country: None (occurrence: None)
  Receive Date: 20060914
  Receipt Date: 20060901
  Transmission Date: 20061208
  Serious: Yes (Hospitalization)
  Sender: FDA-Public Use
  Company Number: 2006108707

PATIENT
  Age: 54 Year
  Sex: Female
  Weight: 87.0906 kg

DRUGS (18)
  1. PREDNISONE TAB [Suspect]
     Indication: ASTHMA
     Dates: start: 19940101, end: 20040201
  2. LIPITOR [Suspect]
     Indication: BLOOD CHOLESTEROL INCREASED
     Dosage: (40 MG, 1 D)
     Dates: start: 20060824
  3. CORTICOSTEROIDS (CORTICOSTEROIDS) [Suspect]
     Indication: DRUG USE FOR UNKNOWN INDICATION
  4. ACTONEL [Concomitant]
  5. FLONASE [Concomitant]
  6. DILTIA XT (DILTIAZEM HYDROCHLORIDE) [Concomitant]
  7. NEXIUM [Concomitant]
  8. HYDROCHLOROTHIAZIDE/TRIAMTERENE (HYDROCHLOROTHIAZIDE, TRIAMTERENE) [Concomitant]
  9. PLAVIX [Concomitant]
  10. ZYRTEC [Concomitant]
  11. ADVAIR DISKUS 100/50 [Concomitant]
  12. XOLAIR [Concomitant]
  13. ALBUTEROL [Concomitant]
  14. NITROLINGUAL (GLYCERYL TRINITRATE) [Concomitant]
  15. MULTIVITAMIN [Concomitant]
  16. CALCIUM (CALCIUM) [Concomitant]
  17. GLUCOSAMINE (GLUCOSAMINE) [Concomitant]
  18. ALL OTHER THERAPEUTIC PRODUCTS (ALL OTHER THERAPEUTIC PRODUCTS) [Concomitant]

REACTIONS (5)
  - BLOOD CHOLESTEROL INCREASED [None]
  - DRUG HYPERSENSITIVITY [None]
  - FAECES HARD [None]
  - NASAL POLYPS [None]
  - RASH PRURITIC [None]
